FAERS Safety Report 8860599 (Version 1)
Quarter: 2012Q4

REPORT INFORMATION
  Report Type: 
  Country: US (occurrence: US)
  Receive Date: 20121025
  Receipt Date: 20121025
  Transmission Date: 20130627
  Serious: Yes (Hospitalization)
  Sender: FDA-Public Use
  Company Number: US-ASTRAZENECA-2012SE79308

PATIENT
  Age: 68 Year
  Sex: Female
  Weight: 54.4 kg

DRUGS (9)
  1. NEXIUM [Suspect]
     Indication: GASTROOESOPHAGEAL REFLUX DISEASE
     Route: 048
     Dates: start: 2007
  2. METOPROLOL [Suspect]
     Indication: HYPERTENSION
     Route: 048
  3. SEROQUEL [Suspect]
     Indication: DEPRESSION
     Route: 048
     Dates: start: 2010
  4. XANAX [Concomitant]
  5. SODIUM [Concomitant]
  6. AMLODIPINE BESYLATE [Concomitant]
     Indication: HYPERTENSION
  7. AMLODIPINE BESYLATE [Concomitant]
     Indication: HYPERTENSION
  8. LOSARTAN POTASSIUM [Concomitant]
  9. CLONIDINE HCL [Concomitant]

REACTIONS (9)
  - Spinal fracture [Unknown]
  - Fall [Unknown]
  - Blood pressure abnormal [Unknown]
  - Staphylococcal infection [Unknown]
  - Decreased appetite [Unknown]
  - Weight decreased [Unknown]
  - Oedema peripheral [Unknown]
  - Off label use [Unknown]
  - Off label use [Unknown]
